FAERS Safety Report 8460449-7 (Version None)
Quarter: 2012Q2

REPORT INFORMATION
  Report Type: 
  Country: None (occurrence: None)
  Receive Date: 20120622
  Receipt Date: 20120607
  Transmission Date: 20120825
  Serious: Yes (Other)
  Sender: FDA-Public Use
  Company Number: CHPA2012US012570

PATIENT
  Age: 67 Year
  Sex: Female

DRUGS (1)
  1. BENEFIBER W/ WHEAT DEXTRIN [Suspect]
     Indication: DIARRHOEA
     Dosage: 2 TSP, TID
     Route: 048

REACTIONS (3)
  - FAECAL INCONTINENCE [None]
  - OFF LABEL USE [None]
  - DRUG DEPENDENCE [None]
